FAERS Safety Report 16803198 (Version 1)
Quarter: 2019Q3

REPORT INFORMATION
  Report Type: Spontaneous
  Country: US (occurrence: US)
  Receive Date: 20190913
  Receipt Date: 20190913
  Transmission Date: 20191005
  Serious: No
  Sender: FDA-Public Use
  Company Number: US-B.I. PHARMACEUTICALS,INC./RIDGEFIELD-2019-US-100750

PATIENT
  Sex: Female

DRUGS (1)
  1. SYNJARDY [Suspect]
     Active Substance: EMPAGLIFLOZIN\METFORMIN HYDROCHLORIDE
     Indication: PRODUCT USED FOR UNKNOWN INDICATION
     Dosage: 25MG/1000MG
     Route: 065

REACTIONS (6)
  - Headache [Unknown]
  - Pruritus genital [Unknown]
  - Burning sensation [Unknown]
  - Dizziness [Unknown]
  - Proctalgia [Unknown]
  - Blood glucose decreased [Unknown]
